FAERS Safety Report 6527341-6 (Version None)
Quarter: 2009Q4

REPORT INFORMATION
  Report Type: 
  Country: None (occurrence: None)
  Receive Date: 20091222
  Receipt Date: 20091007
  Transmission Date: 20100525
  Serious: No
  Sender: FDA-Public Use
  Company Number: ALL1-2009-03107

PATIENT
  Age: 62 Year
  Sex: Female
  Weight: 72.6 kg

DRUGS (5)
  1. VYVANSE [Suspect]
     Indication: ATTENTION DEFICIT/HYPERACTIVITY DISORDER
     Dosage: 120 MG, (90MG IN AM; 30MG IN PM); 90 MG, (60MG AM; 30MG PM), ORAL
     Route: 048
     Dates: start: 20080301, end: 20080601
  2. VYVANSE [Suspect]
     Indication: ATTENTION DEFICIT/HYPERACTIVITY DISORDER
     Dosage: 120 MG, (90MG IN AM; 30MG IN PM); 90 MG, (60MG AM; 30MG PM), ORAL
     Route: 048
     Dates: start: 20080601
  3. DETROL /01350201/ (TOLTERODINE) [Concomitant]
  4. PROZAC [Concomitant]
  5. CALCIUM [Concomitant]

REACTIONS (4)
  - FEELING HOT [None]
  - HYPERHIDROSIS [None]
  - INAPPROPRIATE SCHEDULE OF DRUG ADMINISTRATION [None]
  - OVERDOSE [None]
